FAERS Safety Report 16930970 (Version 1)
Quarter: 2019Q4

REPORT INFORMATION
  Report Type: Report from Study
  Country: None (occurrence: FR)
  Receive Date: 20191017
  Receipt Date: 20191017
  Transmission Date: 20200122
  Serious: Yes (Hospitalization)
  Sender: FDA-Public Use
  Company Number: FR-ABBVIE-19P-056-2967197-00

PATIENT
  Age: 60 Year
  Sex: Female

DRUGS (3)
  1. VENETOCLAX. [Suspect]
     Active Substance: VENETOCLAX
     Indication: LYMPHOMA
     Route: 048
     Dates: start: 20190529, end: 20190715
  2. ATEZOLIZUMAB. [Concomitant]
     Active Substance: ATEZOLIZUMAB
     Indication: LYMPHOMA
     Dosage: ON DAY 2 OF EACH 21-DAY CYCLE DURING 18 MONTHS (24 CYCLES); LAST DOSE WAS ON 11 JUL 2019
     Route: 065
     Dates: start: 20190523
  3. OBINUTUZUMAB. [Concomitant]
     Active Substance: OBINUTUZUMAB
     Indication: LYMPHOMA
     Dosage: DAYS 1, 8 AND 15  CYCLE 1; CYCLE 2 -8 1000 MG ON DAY 1; LAST DOSE WAS ON 10 JUL 2019
     Route: 042
     Dates: start: 20190522

REACTIONS (1)
  - Febrile bone marrow aplasia [Recovered/Resolved]

NARRATIVE: CASE EVENT DATE: 20190715
